FAERS Safety Report 7874817-5 (Version None)
Quarter: 2011Q4

REPORT INFORMATION
  Report Type: 
  Country: None (occurrence: None)
  Receive Date: 20111031
  Receipt Date: 20111020
  Transmission Date: 20120403
  Serious: Yes (Hospitalization)
  Sender: FDA-Public Use
  Company Number: IT-JNJFOC-20111010228

PATIENT
  Age: 58 Year
  Sex: Male

DRUGS (3)
  1. REMICADE [Suspect]
     Indication: CROHN'S DISEASE
     Dosage: CYCLIC
     Route: 042
     Dates: start: 20101130, end: 20101214
  2. CIPROFLOXACIN [Concomitant]
     Route: 048
  3. FLAGYL [Concomitant]
     Route: 048

REACTIONS (1)
  - LARYNGEAL CANCER [None]
